FAERS Safety Report 18063506 (Version 3)
Quarter: 2022Q4

REPORT INFORMATION
  Report Type: Spontaneous
  Country: GB (occurrence: GB)
  Receive Date: 20200724
  Receipt Date: 20221205
  Transmission Date: 20230113
  Serious: Yes (Hospitalization, Other)
  Sender: FDA-Public Use
  Company Number: GB-SA-2020SA175244

PATIENT
  Age: 75 Year
  Sex: Male

DRUGS (8)
  1. DOXAZOSIN [Suspect]
     Active Substance: DOXAZOSIN MESYLATE
     Indication: Hormone-refractory prostate cancer
     Dosage: 4 MILLIGRAM, ONCE A DAY
     Route: 048
     Dates: start: 2013
  2. ACETAMINOPHEN [Suspect]
     Active Substance: ACETAMINOPHEN
     Indication: Pain
     Dosage: 1 G
     Route: 048
     Dates: start: 20170606
  3. TAMSULOSIN [Suspect]
     Active Substance: TAMSULOSIN
     Indication: Hormone-refractory prostate cancer
     Dosage: 400 MILLIGRAM, ONCE A DAY
     Route: 048
     Dates: start: 2006
  4. ENOXAPARIN SODIUM [Suspect]
     Active Substance: ENOXAPARIN SODIUM
     Indication: Thrombosis prophylaxis
     Dosage: UNK
     Route: 065
     Dates: start: 2013, end: 20190405
  5. ENOXAPARIN SODIUM [Suspect]
     Active Substance: ENOXAPARIN SODIUM
     Indication: Thrombosis prophylaxis
     Dosage: 100 MILLIGRAM, ONCE A DAY (100 MG, QD (2 SEPARATE DOSES)
     Route: 058
     Dates: start: 20190410
  6. DEXAMETHASONE [Suspect]
     Active Substance: DEXAMETHASONE
     Indication: Hormone-refractory prostate cancer
     Dosage: 0.5 MILLIGRAM, ONCE A DAY
     Route: 048
     Dates: start: 2015
  7. LANSOPRAZOLE [Suspect]
     Active Substance: LANSOPRAZOLE
     Indication: Hormone-refractory prostate cancer
     Dosage: 30 MG, QD
     Route: 048
     Dates: start: 2015
  8. LACTULOSE [Concomitant]
     Active Substance: LACTULOSE
     Indication: Product used for unknown indication
     Dosage: UNK, TWO TIMES A DAY((3.4G/5ML SOLUTION)
     Route: 048

REACTIONS (9)
  - Haematuria [Recovered/Resolved]
  - Staphylococcal infection [Unknown]
  - Adrenocortical insufficiency acute [Unknown]
  - Hydronephrosis [Unknown]
  - Blood disorder [Unknown]
  - Haemoglobin decreased [Unknown]
  - Product use in unapproved indication [Unknown]
  - Venous thrombosis limb [Unknown]
  - Stent placement [Unknown]

NARRATIVE: CASE EVENT DATE: 20190311
